FAERS Safety Report 8329912-3 (Version None)
Quarter: 2012Q2

REPORT INFORMATION
  Report Type: 
  Country: None (occurrence: None)
  Receive Date: 20120502
  Receipt Date: 20120429
  Transmission Date: 20120825
  Serious: Yes (Life-Threatening, Hospitalization, Other)
  Sender: FDA-Public Use
  Company Number: IR-ABBOTT-12P-080-0931092-00

PATIENT
  Sex: Female
  Weight: 62 kg

DRUGS (7)
  1. HUMIRA [Suspect]
     Indication: COLITIS ULCERATIVE
     Route: 058
     Dates: start: 20120409, end: 20120409
  2. HUMIRA [Suspect]
     Route: 058
     Dates: start: 20120410, end: 20120410
  3. ASACOL [Concomitant]
     Dosage: 2 SOLUTIONS WEEKLY
     Route: 054
  4. AZATHIOPRINE [Concomitant]
     Indication: COLITIS ULCERATIVE
     Route: 048
  5. HUMIRA [Suspect]
     Route: 058
     Dates: start: 20120413, end: 20120413
  6. ASACOL [Concomitant]
     Indication: COLITIS ULCERATIVE
     Route: 048
  7. BUDESONIDE [Concomitant]
     Indication: COLITIS ULCERATIVE
     Route: 048

REACTIONS (7)
  - CEREBROVASCULAR ACCIDENT [None]
  - DEPRESSED LEVEL OF CONSCIOUSNESS [None]
  - DIARRHOEA [None]
  - ABDOMINAL PAIN [None]
  - RECTAL HAEMORRHAGE [None]
  - HEADACHE [None]
  - THROMBOSIS [None]
